FAERS Safety Report 7190456-6 (Version None)
Quarter: 2010Q4

REPORT INFORMATION
  Report Type: 
  Country: None (occurrence: None)
  Receive Date: 20101221
  Receipt Date: 20101221
  Transmission Date: 20110411
  Serious: Yes (Hospitalization)
  Sender: FDA-Public Use
  Company Number: None

PATIENT
  Sex: Female
  Weight: 54.6 kg

DRUGS (1)
  1. CISPLATIN [Suspect]
     Dosage: 64 MG

REACTIONS (1)
  - NAUSEA [None]
